FAERS Safety Report 9996387 (Version 1)
Quarter: 2014Q1

REPORT INFORMATION
  Report Type: Spontaneous
  Country: GB (occurrence: GB)
  Receive Date: 20140311
  Receipt Date: 20140311
  Transmission Date: 20141002
  Serious: No
  Sender: FDA-Public Use
  Company Number: GB-MERCK-1403GBR002357

PATIENT
  Sex: Female

DRUGS (2)
  1. LOTRIDERM [Suspect]
     Indication: VULVOVAGINAL PRURITUS
     Route: 062
  2. ACETAMINOPHEN [Concomitant]

REACTIONS (1)
  - Menstruation delayed [Unknown]
